FAERS Safety Report 7724722-X (Version None)
Quarter: 2011Q3

REPORT INFORMATION
  Report Type: 
  Country: None (occurrence: None)
  Receive Date: 20110901
  Receipt Date: 20110817
  Transmission Date: 20111222
  Serious: Yes (Other)
  Sender: FDA-Public Use
  Company Number: US-BAYER-2011-076228

PATIENT
  Age: 78 Year
  Sex: Female
  Weight: 68 kg

DRUGS (2)
  1. ASPIRIN [Suspect]
     Indication: BACK PAIN
     Dosage: 1000 MG, QD, BOTTLE COUNT 80S
     Route: 048
     Dates: start: 20110815, end: 20110816
  2. ASPIRIN [Suspect]
     Dosage: 500 MG, QD, BOTTLE COUNT 80S
     Route: 048
     Dates: start: 20110817

REACTIONS (2)
  - BACK PAIN [None]
  - RECTAL HAEMORRHAGE [None]
